FAERS Safety Report 9828414 (Version 1)
Quarter: 2014Q1

REPORT INFORMATION
  Report Type: Spontaneous
  Country: US (occurrence: US)
  Receive Date: 20140117
  Receipt Date: 20140117
  Transmission Date: 20141002
  Serious: Yes (Death)
  Sender: FDA-Public Use
  Company Number: US-PFIZER INC-2014007793

PATIENT
  Age: 44 Year
  Sex: Male

DRUGS (8)
  1. DEXTROMETHORPHAN HBR [Suspect]
  2. DILTIAZEM HCL [Suspect]
  3. HEROIN [Suspect]
  4. METHADONE [Suspect]
  5. COCAINE [Suspect]
  6. TOPIRAMATE [Suspect]
  7. OLANZAPINE [Suspect]
  8. CODEINE [Suspect]

REACTIONS (1)
  - Drug abuse [Fatal]
